FAERS Safety Report 8172951-6 (Version None)
Quarter: 2012Q1

REPORT INFORMATION
  Report Type: 
  Country: None (occurrence: None)
  Receive Date: 20120229
  Receipt Date: 20120220
  Transmission Date: 20120608
  Serious: Yes (Hospitalization)
  Sender: FDA-Public Use
  Company Number: US-BRISTOL-MYERS SQUIBB COMPANY-16408288

PATIENT
  Age: 78 Year
  Sex: Male

DRUGS (8)
  1. OXYCODONE HCL AND ACETAMINOPHEN [Suspect]
     Dosage: 1DF=5-10/500MG
  2. DESIPRAMINE HCL [Suspect]
  3. MORPHINE SULFATE [Interacting]
  4. FUROSEMIDE [Suspect]
  5. DIPHENHYDRAMINE HCL [Suspect]
  6. METFORMIN HCL [Interacting]
  7. CIPROFLOXACIN [Suspect]
  8. GABAPENTIN [Interacting]

REACTIONS (3)
  - DELIRIUM [None]
  - AGITATION [None]
  - DRUG INTERACTION [None]
